FAERS Safety Report 11109631 (Version 2)
Quarter: 2015Q2

REPORT INFORMATION
  Report Type: Spontaneous
  Country: US (occurrence: US)
  Receive Date: 20150513
  Receipt Date: 20150520
  Transmission Date: 20150821
  Serious: No
  Sender: FDA-Public Use
  Company Number: US-HORIZON-DUE-0027-2015

PATIENT
  Age: 39 Year
  Sex: Female

DRUGS (1)
  1. DUEXIS [Suspect]
     Active Substance: FAMOTIDINE\IBUPROFEN
     Indication: TENDONITIS

REACTIONS (3)
  - Fatigue [Recovered/Resolved]
  - Off label use [Unknown]
  - Dizziness [Recovered/Resolved]
